FAERS Safety Report 7960947-6 (Version None)
Quarter: 2011Q4

REPORT INFORMATION
  Report Type: 
  Country: None (occurrence: None)
  Receive Date: 20111202
  Receipt Date: 20111118
  Transmission Date: 20120403
  Serious: Yes (Death)
  Sender: FDA-Public Use
  Company Number: US-2011-10851

PATIENT
  Age: 33 Year
  Sex: Female
  Weight: 56 kg

DRUGS (2)
  1. CYCLOPHOSPHAMIDE [Suspect]
     Indication: MYELOID LEUKAEMIA
     Dosage: 60MG/KG, QD, INTRAVENOUS
     Route: 042
     Dates: start: 20110403, end: 20110404
  2. BUSULFEX [Suspect]
     Indication: MYELOID LEUKAEMIA
     Dosage: 3.2 MG/KG, INTRAVENOUS
     Route: 042
     Dates: start: 20110329, end: 20110401

REACTIONS (3)
  - CHRONIC GRAFT VERSUS HOST DISEASE [None]
  - RENAL FAILURE [None]
  - BRONCHOPULMONARY ASPERGILLOSIS [None]
